FAERS Safety Report 7412040-9 (Version None)
Quarter: 2011Q2

REPORT INFORMATION
  Report Type: 
  Country: None (occurrence: None)
  Receive Date: 20110413
  Receipt Date: 20110404
  Transmission Date: 20111010
  Serious: Yes (Other)
  Sender: FDA-Public Use
  Company Number: FR-ASTRAZENECA-2011SE19898

PATIENT
  Age: 50 Year
  Sex: Male

DRUGS (3)
  1. CRESTOR [Suspect]
     Indication: HYPERCHOLESTEROLAEMIA
     Route: 048
     Dates: start: 20030101
  2. SOTALOL HCL [Concomitant]
  3. KARDEGIC [Concomitant]

REACTIONS (3)
  - LEUKOPENIA [None]
  - THROMBOCYTOPENIA [None]
  - NEUTROPENIA [None]
